FAERS Safety Report 16117531 (Version 1)
Quarter: 2019Q1

REPORT INFORMATION
  Report Type: Spontaneous
  Country: GB (occurrence: GB)
  Receive Date: 20190326
  Receipt Date: 20190326
  Transmission Date: 20190418
  Serious: Yes (Other)
  Sender: FDA-Public Use
  Company Number: GB-AUROBINDO-AUR-APL-2010-03232

PATIENT

DRUGS (5)
  1. PARACETAMOL 500 MG SOLUBLE TABLETS (GSL) [Suspect]
     Active Substance: ACETAMINOPHEN
     Indication: ARTHRALGIA
     Dosage: 3 GRAM, ONCE A DAY
     Route: 065
  2. COCODAMOL [Suspect]
     Active Substance: ACETAMINOPHEN\CODEINE PHOSPHATE
     Indication: TEMPOROMANDIBULAR JOINT SYNDROME
     Dosage: UNK UNK,UNK,
     Route: 065
  3. AMOXICILLIN. [Concomitant]
     Active Substance: AMOXICILLIN
     Indication: URINARY TRACT INFECTION
     Dosage: UNK UNK,UNK,
     Route: 065
  4. CODEINE [Concomitant]
     Active Substance: CODEINE
     Indication: PRODUCT USED FOR UNKNOWN INDICATION
     Dosage: UNK UNK,UNK,
     Route: 065
  5. ERYTHROMYCIN. [Concomitant]
     Active Substance: ERYTHROMYCIN
     Indication: LOWER RESPIRATORY TRACT INFECTION
     Dosage: UNK UNK,UNK,
     Route: 065

REACTIONS (25)
  - Metabolic acidosis [Recovered/Resolved]
  - Mean cell volume increased [Recovered/Resolved]
  - Gamma-glutamyltransferase increased [Recovered/Resolved]
  - Decreased appetite [Recovered/Resolved]
  - Caesarean section [Recovered/Resolved]
  - Haemophilus test positive [Recovered/Resolved]
  - Back pain [Recovered/Resolved]
  - Headache [Recovered/Resolved]
  - Vomiting [Recovered/Resolved]
  - White blood cell count increased [Recovered/Resolved]
  - Anisocytosis [Recovered/Resolved]
  - Foetal heart rate deceleration abnormality [Recovered/Resolved]
  - Dyspnoea [Recovered/Resolved]
  - Respiratory rate increased [Recovered/Resolved]
  - Blood alkaline phosphatase increased [Recovered/Resolved]
  - Pyroglutamate increased [Recovered/Resolved]
  - Urinary tract infection [Recovered/Resolved]
  - Ketonuria [Recovered/Resolved]
  - Wheezing [Recovered/Resolved]
  - Neutrophilia [Recovered/Resolved]
  - Musculoskeletal chest pain [Recovered/Resolved]
  - Live birth [Recovered/Resolved]
  - Lower respiratory tract infection [Recovered/Resolved]
  - Macrocytosis [Recovered/Resolved]
  - Exposure during pregnancy [Recovered/Resolved]
